FAERS Safety Report 23061280 (Version 1)
Quarter: 2023Q4

REPORT INFORMATION
  Report Type: Spontaneous
  Country: AU (occurrence: AU)
  Receive Date: 20231013
  Receipt Date: 20231013
  Transmission Date: 20240110
  Serious: Yes (Hospitalization)
  Sender: FDA-Public Use
  Company Number: AU-GLAXOSMITHKLINE-AU2023APC139426

PATIENT

DRUGS (1)
  1. NUCALA [Suspect]
     Active Substance: MEPOLIZUMAB
     Indication: Chronic rhinosinusitis with nasal polyps
     Dosage: 100 MG, Q4W, 1 DOSE ONLY
     Route: 058

REACTIONS (5)
  - Blood pressure increased [Unknown]
  - Diarrhoea [Unknown]
  - Hypersensitivity [Unknown]
  - Rash pruritic [Unknown]
  - Dyspnoea [Unknown]
